FAERS Safety Report 5375544-9 (Version None)
Quarter: 2007Q2

REPORT INFORMATION
  Report Type: 
  Country: None (occurrence: None)
  Receive Date: 20070629
  Receipt Date: 20070619
  Transmission Date: 20071010
  Serious: Yes (Other)
  Sender: FDA-Public Use
  Company Number: BR-PFIZER INC-2007051278

PATIENT
  Sex: Female
  Weight: 41 kg

DRUGS (11)
  1. SOLU-MEDROL [Suspect]
     Indication: INFLAMMATION
  2. VENLAFAXINE HCL [Concomitant]
     Route: 048
  3. BETAHISTINE [Concomitant]
     Route: 048
     Dates: start: 20070401, end: 20070618
  4. ALENDRONATE SODIUM [Concomitant]
     Route: 048
  5. ALL OTHER THERAPEUTIC PRODUCTS [Concomitant]
     Route: 048
  6. LINSEED OIL [Concomitant]
     Route: 048
  7. PHARMATON [Concomitant]
     Route: 048
  8. ALL OTHER THERAPEUTIC PRODUCTS [Concomitant]
     Route: 048
  9. CALCIUM CHLORIDE [Concomitant]
     Route: 048
  10. FOLIC ACID [Concomitant]
     Route: 048
  11. ATROVENT [Concomitant]
     Route: 055
     Dates: start: 20070612

REACTIONS (2)
  - HYPERHIDROSIS [None]
  - HYPOTENSION [None]
